FAERS Safety Report 4716855-7 (Version None)
Quarter: 2005Q3

REPORT INFORMATION
  Report Type: 
  Country: None (occurrence: None)
  Receive Date: 20050714
  Receipt Date: 20050630
  Transmission Date: 20060218
  Serious: Yes (Death, Hospitalization)
  Sender: FDA-Public Use
  Company Number: 2005-BP-1042RO

PATIENT
  Age: 17 Year
  Sex: Female

DRUGS (6)
  1. METHOTREXATE [Suspect]
     Indication: JUVENILE ARTHRITIS
     Dosage: 7.5 MG PER WEEK (NR, 1 IN 1 WK), PO
     Route: 048
  2. CYCLOPHOSPHAMIDE [Suspect]
     Indication: B-CELL LYMPHOMA
     Dosage: 750 MG/M2 - 6 CYCLES (NR), NR
  3. PREDNISONE [Suspect]
     Indication: B-CELL LYMPHOMA
     Dosage: 50 MG/M2 - 6 CYCLES (NR), NR
  4. DOXORUBICIN HCL [Suspect]
     Indication: B-CELL LYMPHOMA
     Dosage: 50 MG/M2 - 6 CYCLES (NR), NR
  5. VINCRISTINE [Suspect]
     Indication: B-CELL LYMPHOMA
     Dosage: 1.4 MG/M2 - 6 CYCLES (NR), NR
  6. PREDNISONE [Concomitant]

REACTIONS (5)
  - CARDIO-RESPIRATORY ARREST [None]
  - CEREBRAL HAEMORRHAGE [None]
  - CHORIOMENINGITIS LYMPHOCYTIC [None]
  - DIFFUSE LARGE B-CELL LYMPHOMA STAGE II [None]
  - OVARIAN DISORDER [None]
